FAERS Safety Report 9805041 (Version 1)
Quarter: 2014Q1

REPORT INFORMATION
  Report Type: Report from Study
  Country: US (occurrence: US)
  Receive Date: 20140109
  Receipt Date: 20140109
  Transmission Date: 20141002
  Serious: Yes (Death)
  Sender: FDA-Public Use
  Company Number: US-ROCHE-1331218

PATIENT
  Sex: Female

DRUGS (5)
  1. AVASTIN [Suspect]
     Indication: COLON CANCER
     Dosage: THE PATIENT RECEIVED DOSE WITH SODIUM CHLORIDE 0.9% INJECTION (100 ML)
     Route: 042
     Dates: start: 20110726, end: 20110726
  2. AVASTIN [Suspect]
     Indication: COLORECTAL CANCER METASTATIC
  3. LEUCOVORIN [Concomitant]
  4. 5-FU [Concomitant]
     Dosage: OVER 48 HOURS
     Route: 042
  5. ELOXATIN [Concomitant]

REACTIONS (1)
  - Death [Fatal]
